FAERS Safety Report 10109660 (Version 2)
Quarter: 2014Q4

REPORT INFORMATION
  Report Type: Other
  Country: US (occurrence: US)
  Receive Date: 20140425
  Receipt Date: 20141121
  Transmission Date: 20150528
  Serious: Yes (Hospitalization, Other)
  Sender: FDA-Public Use
  Company Number: US-GSKPPD-2014GSK007546

PATIENT
  Age: 54 Year
  Sex: Male

DRUGS (13)
  1. SPIRONOLACTONE. [Concomitant]
     Active Substance: SPIRONOLACTONE
  2. AMLODIPINE [Concomitant]
     Active Substance: AMLODIPINE BESYLATE
  3. ACCUPRIL [Concomitant]
     Active Substance: QUINAPRIL HYDROCHLORIDE
  4. BENICAR [Concomitant]
     Active Substance: OLMESARTAN MEDOXOMIL
  5. HYDRALAZINE [Concomitant]
     Active Substance: HYDRALAZINE HYDROCHLORIDE
  6. K-DUR [Concomitant]
     Active Substance: POTASSIUM CHLORIDE
  7. TRICOR [Concomitant]
     Active Substance: FENOFIBRATE
  8. IMDUR [Concomitant]
     Active Substance: ISOSORBIDE MONONITRATE
  9. ZAROXOLYN [Concomitant]
     Active Substance: METOLAZONE
  10. ASPIRIN. [Concomitant]
     Active Substance: ASPIRIN
  11. NORVASC [Concomitant]
     Active Substance: AMLODIPINE BESYLATE
  12. AVANDIA [Suspect]
     Active Substance: ROSIGLITAZONE MALEATE
     Indication: DIABETES MELLITUS
     Dosage: DATES OF AVANDIA USE COULD NOT BE CONFIRMED IN RECORDS REVIEWED.
     Route: 048
  13. LANOXIN [Concomitant]
     Active Substance: DIGOXIN

REACTIONS (4)
  - Myocardial infarction [Unknown]
  - Cardiac failure congestive [Unknown]
  - Arteriosclerosis [Unknown]
  - Pulmonary hypertension [Unknown]

NARRATIVE: CASE EVENT DATE: 20040518
